FAERS Safety Report 9928939 (Version 1)
Quarter: 2014Q1

REPORT INFORMATION
  Report Type: Spontaneous
  Country: JP (occurrence: JP)
  Receive Date: 20140227
  Receipt Date: 20140227
  Transmission Date: 20141002
  Serious: Yes (Life-Threatening)
  Sender: FDA-Public Use
  Company Number: JP-MALLINCKRODT-T201401366

PATIENT
  Age: 52 Year
  Sex: Male
  Weight: 59 kg

DRUGS (9)
  1. OPTIRAY [Suspect]
     Indication: ARTERIOGRAM CORONARY
     Dosage: 57 ML, SINGLE
     Route: 013
     Dates: start: 20140206, end: 20140206
  2. ASPIRIN [Concomitant]
     Dosage: 100 MG, UNK
     Route: 048
  3. SODIUM RABEPRAZOLE [Concomitant]
     Dosage: 10 MG, UNK
     Route: 048
  4. CLOPIDOGREL SULFATE [Concomitant]
     Dosage: 75 MG, UNK
     Route: 048
  5. ENALAPRIL [Concomitant]
     Dosage: 2.5 MG, UNK
     Route: 048
  6. ROSUVASTATIN CALCIUM [Concomitant]
     Dosage: 5 MG, UNK
     Route: 048
  7. CARVEDILOL [Concomitant]
     Dosage: 2.5 MG, UNK
     Route: 048
  8. LIDOCAINE [Concomitant]
     Indication: PREMEDICATION
     Dosage: UNK
     Dates: start: 20140206, end: 20140206
  9. HEPARIN SODIUM [Concomitant]
     Indication: PREMEDICATION
     Dosage: UNK
     Dates: start: 20140206, end: 20140206

REACTIONS (1)
  - Anaphylactic shock [Recovering/Resolving]
